APPROVED DRUG PRODUCT: PERFOROMIST
Active Ingredient: FORMOTEROL FUMARATE
Strength: 0.02MG/2ML
Dosage Form/Route: SOLUTION;INHALATION
Application: N022007 | Product #001 | TE Code: AN
Applicant: VIATRIS SPECIALITY LLC
Approved: May 11, 2007 | RLD: Yes | RS: Yes | Type: RX